FAERS Safety Report 7469962-2 (Version None)
Quarter: 2011Q2

REPORT INFORMATION
  Report Type: 
  Country: None (occurrence: None)
  Receive Date: 20110510
  Receipt Date: 20110505
  Transmission Date: 20111010
  Serious: Yes (Hospitalization, Other)
  Sender: FDA-Public Use
  Company Number: DE-AMGEN-DEUSP2011016067

PATIENT
  Sex: Male
  Weight: 94 kg

DRUGS (8)
  1. DIUSALENT [Concomitant]
     Route: 048
  2. LOVASTATIN [Concomitant]
     Dosage: 10 MG, UNK
     Route: 048
  3. DEKRISTOL [Concomitant]
     Dosage: 20000 IU, Q2WK
     Route: 048
  4. LEVOTHYROXINE SODIUM [Concomitant]
     Route: 048
  5. CLOPIDOGREL [Concomitant]
  6. PROLIA [Suspect]
     Indication: OSTEOPOROSIS
     Dosage: UNK UNK, Q6MO
     Route: 058
     Dates: start: 20100828, end: 20110105
  7. ASPIRIN [Concomitant]
  8. OSTEOKUOL [Concomitant]
     Dosage: 0.25 MG, UNK
     Route: 048

REACTIONS (2)
  - SKIN INFECTION [None]
  - HAEMATOMA [None]
